FAERS Safety Report 24981085 (Version 1)
Quarter: 2025Q1

REPORT INFORMATION
  Report Type: Spontaneous
  Country: US (occurrence: US)
  Receive Date: 20250218
  Receipt Date: 20250218
  Transmission Date: 20250409
  Serious: No
  Sender: MERZ
  Company Number: US-MERZ PHARMACEUTICALS, LLC-ACO_174520_2023

PATIENT
  Sex: Male

DRUGS (8)
  1. INBRIJA [Suspect]
     Active Substance: LEVODOPA
     Indication: Parkinson^s disease
     Dates: start: 20240501
  2. INBRIJA [Suspect]
     Active Substance: LEVODOPA
     Indication: On and off phenomenon
     Dates: start: 20240501
  3. INBRIJA [Suspect]
     Active Substance: LEVODOPA
     Dates: start: 20240501
  4. INBRIJA [Suspect]
     Active Substance: LEVODOPA
     Dates: start: 20220321
  5. INBRIJA [Suspect]
     Active Substance: LEVODOPA
     Dates: start: 20220321
  6. CARBIDOPA\LEVODOPA [Concomitant]
     Active Substance: CARBIDOPA\LEVODOPA
     Indication: Product used for unknown indication
     Dosage: 10 MILLIGRAM, BID
     Route: 065
  7. CARBIDOPA\LEVODOPA [Concomitant]
     Active Substance: CARBIDOPA\LEVODOPA
     Dosage: ER, BID
     Route: 065
  8. CARBIDOPA\LEVODOPA [Concomitant]
     Active Substance: CARBIDOPA\LEVODOPA
     Dosage: 200 MILLIGRAM, 5X/QD
     Route: 048

REACTIONS (10)
  - Peripheral coldness [Unknown]
  - Unevaluable event [Unknown]
  - Gait disturbance [Unknown]
  - Epistaxis [Unknown]
  - Therapeutic response delayed [Unknown]
  - Wrong technique in device usage process [Not Recovered/Not Resolved]
  - Drug ineffective [Recovered/Resolved]
  - Drug ineffective [Unknown]
  - Nasal discharge discolouration [Unknown]
  - Cough [Unknown]
